FAERS Safety Report 7911679 (Version 2)
Quarter: 2015Q1

REPORT INFORMATION
  Report Type: Report from Study
  Country: US (occurrence: US)
  Receive Date: 20110422
  Receipt Date: 20150304
  Transmission Date: 20150721
  Serious: Yes (Hospitalization)
  Sender: FDA-Public Use
  Company Number: US-ROCHE-766505

PATIENT
  Age: 60 Year
  Sex: Female

DRUGS (17)
  1. DEPO-MEDROL [Concomitant]
     Active Substance: METHYLPREDNISOLONE ACETATE
     Indication: BURSITIS
     Dosage: FREQUENCY: STAT DOSE
     Route: 030
     Dates: start: 20070309, end: 20070309
  2. KEFLEX [Concomitant]
     Active Substance: CEPHALEXIN
     Indication: PLASTIC SURGERY
     Dosage: INDICATION REPORTED AS ELECTIVE/COSMETIC SURGERY.
     Route: 065
  3. KENALOG (CANADA) [Concomitant]
     Dosage: STAT DOSE, INDICATION: RIGHT TROCHANTER BURSITIS
     Route: 030
     Dates: start: 20070309, end: 20070309
  4. CYMBALTA [Concomitant]
     Active Substance: DULOXETINE HYDROCHLORIDE
     Indication: DEPRESSION
     Route: 048
  5. TOCILIZUMAB [Suspect]
     Active Substance: TOCILIZUMAB
     Indication: RHEUMATOID ARTHRITIS
     Dosage: LAST DOSE PRIOR TO SAE ON 15 NOV 2010.
     Route: 042
  6. METHOTREXATE [Suspect]
     Active Substance: METHOTREXATE
     Indication: RHEUMATOID ARTHRITIS
     Dosage: DOSE FORM PILLS,
     Route: 048
     Dates: start: 20040408, end: 20050607
  7. BENADRYL [Concomitant]
     Active Substance: DIPHENHYDRAMINE HYDROCHLORIDE
     Indication: PLASTIC SURGERY
     Dosage: INDICATION REPORTED AS ELECTIVE/COSMETIC SURGERY.
     Route: 065
  8. VALIUM [Concomitant]
     Active Substance: DIAZEPAM
     Indication: PLASTIC SURGERY
     Dosage: INDICATION REPORTED AS ELECTIVE/COSMETIC SURGERY.
     Route: 065
  9. METHOTREXATE [Suspect]
     Active Substance: METHOTREXATE
     Dosage: FREQUENCY: QS
     Route: 048
  10. CYMBALTA [Concomitant]
     Active Substance: DULOXETINE HYDROCHLORIDE
     Dosage: FREQUENCY: EVERY DAY
     Route: 048
  11. PHENERGAN [Concomitant]
     Active Substance: PROMETHAZINE HYDROCHLORIDE
     Indication: PLASTIC SURGERY
     Dosage: INDICATION: INDICATION REPORTED AS ELECTIVE/COSMETIC SURGERY.
     Route: 065
  12. FOLIC ACID. [Concomitant]
     Active Substance: FOLIC ACID
     Indication: RHEUMATOID ARTHRITIS
     Dosage: FORM: PILLS,
     Route: 048
  13. NEXIUM [Concomitant]
     Active Substance: ESOMEPRAZOLE MAGNESIUM
     Indication: PROPHYLAXIS AGAINST GASTROINTESTINAL ULCER
     Route: 065
  14. METHOTREXATE [Suspect]
     Active Substance: METHOTREXATE
     Dosage: FRQUENCY: QS
     Route: 048
     Dates: start: 20050707, end: 20060322
  15. FLONASE (UNITED STATES) [Concomitant]
     Indication: HYPERSENSITIVITY
     Dosage: DOSE: 2 SPRAY, FREQUENCY: EVERY DAY.
     Route: 045
     Dates: start: 20080302, end: 200809
  16. KENALOG (CANADA) [Concomitant]
     Indication: PAIN IN EXTREMITY
     Route: 030
     Dates: start: 20060922, end: 20060922
  17. TOCILIZUMAB [Suspect]
     Active Substance: TOCILIZUMAB
     Indication: RHEUMATOID ARTHRITIS
     Route: 042
     Dates: start: 20051219, end: 20071116

REACTIONS (1)
  - Myocardial infarction [Recovering/Resolving]

NARRATIVE: CASE EVENT DATE: 20110307
